FAERS Safety Report 23122751 (Version 5)
Quarter: 2025Q1

REPORT INFORMATION
  Report Type: Spontaneous
  Country: US (occurrence: US)
  Receive Date: 20231030
  Receipt Date: 20250227
  Transmission Date: 20250408
  Serious: No
  Sender: UCB
  Company Number: US-UCBSA-2023039643

PATIENT
  Age: 39 Year
  Sex: Female

DRUGS (3)
  1. NAYZILAM [Suspect]
     Active Substance: MIDAZOLAM
     Indication: Seizure cluster
  2. VIMPAT [Suspect]
     Active Substance: LACOSAMIDE
     Indication: Seizure
  3. KEPPRA [Suspect]
     Active Substance: LEVETIRACETAM
     Indication: Seizure

REACTIONS (1)
  - Drug ineffective [Unknown]
